FAERS Safety Report 6064185-6 (Version None)
Quarter: 2009Q1

REPORT INFORMATION
  Report Type: 
  Country: None (occurrence: None)
  Receive Date: 20090204
  Receipt Date: 20090128
  Transmission Date: 20090719
  Serious: Yes (Other)
  Sender: FDA-Public Use
  Company Number: ES-BRISTOL-MYERS SQUIBB COMPANY-14490007

PATIENT
  Age: 55 Year
  Sex: Male

DRUGS (1)
  1. COAPROVEL FILM-COATED TABS 150/12.5 MG [Suspect]
     Indication: HYPERTENSION
     Dosage: 1 DOSAGE FORM = 1 TABLET.
     Route: 048

REACTIONS (4)
  - ABDOMINAL DISCOMFORT [None]
  - DRY MOUTH [None]
  - HEPATITIS B [None]
  - MYALGIA [None]
